FAERS Safety Report 21576396 (Version 24)
Quarter: 2025Q4

REPORT INFORMATION
  Report Type: Spontaneous
  Country: CA (occurrence: CA)
  Receive Date: 20221110
  Receipt Date: 20251018
  Transmission Date: 20260118
  Serious: Yes (Hospitalization, Other)
  Sender: CELLTRION
  Company Number: CA-CELLTRION INC.-2022CA004584

PATIENT

DRUGS (50)
  1. INFLIXIMAB [Suspect]
     Active Substance: INFLIXIMAB
     Indication: Colitis ulcerative
     Dosage: 5 MG/KG
     Route: 042
  2. INFLIXIMAB [Suspect]
     Active Substance: INFLIXIMAB
     Dosage: 5 MG/KG
     Route: 042
  3. INFLIXIMAB [Suspect]
     Active Substance: INFLIXIMAB
     Dosage: 5 MG/KG
     Route: 042
  4. INFLIXIMAB [Suspect]
     Active Substance: INFLIXIMAB
     Dosage: 5 MG/KG
     Route: 042
  5. INFLIXIMAB [Suspect]
     Active Substance: INFLIXIMAB
     Dosage: 5 MG/KG
     Route: 042
  6. INFLIXIMAB [Suspect]
     Active Substance: INFLIXIMAB
     Dosage: 10 MG/KG
     Route: 042
  7. INFLIXIMAB [Suspect]
     Active Substance: INFLIXIMAB
     Dosage: 10 MG/KG
     Route: 042
  8. INFLIXIMAB [Suspect]
     Active Substance: INFLIXIMAB
     Dosage: 430 MILLIGRAM
     Route: 042
  9. INFLIXIMAB [Suspect]
     Active Substance: INFLIXIMAB
     Dosage: 430 MILLIGRAM
     Route: 042
  10. INFLIXIMAB [Suspect]
     Active Substance: INFLIXIMAB
     Dosage: 10 MG/KG
     Route: 042
  11. INFLIXIMAB [Suspect]
     Active Substance: INFLIXIMAB
     Dosage: 450 MILLIGRAM
     Route: 042
  12. INFLIXIMAB [Suspect]
     Active Substance: INFLIXIMAB
     Dosage: 10 MG/KG
     Route: 042
  13. INFLIXIMAB [Suspect]
     Active Substance: INFLIXIMAB
     Dosage: 10 MG/KG
     Route: 042
  14. INFLIXIMAB [Suspect]
     Active Substance: INFLIXIMAB
     Dosage: 10 MG/KG
     Route: 042
  15. INFLIXIMAB [Suspect]
     Active Substance: INFLIXIMAB
     Dosage: 10 MG/KG
     Route: 042
  16. INFLIXIMAB [Suspect]
     Active Substance: INFLIXIMAB
     Dosage: 10 MG/KG
     Route: 042
  17. INFLIXIMAB [Suspect]
     Active Substance: INFLIXIMAB
     Dosage: 10 MG/KG
     Route: 042
  18. INFLIXIMAB [Suspect]
     Active Substance: INFLIXIMAB
     Dosage: 460 MILLIGRAM
     Route: 042
  19. INFLIXIMAB [Suspect]
     Active Substance: INFLIXIMAB
     Dosage: 480 MILLIGRAM
     Route: 042
  20. INFLIXIMAB [Suspect]
     Active Substance: INFLIXIMAB
     Dosage: 450 MILLIGRAM
     Route: 042
  21. INFLIXIMAB [Suspect]
     Active Substance: INFLIXIMAB
     Dosage: 5 MG/KG
     Route: 042
  22. INFLIXIMAB [Suspect]
     Active Substance: INFLIXIMAB
     Dosage: 5 MG/KG
     Route: 042
  23. INFLIXIMAB [Suspect]
     Active Substance: INFLIXIMAB
     Dosage: 5 MG/KG
     Route: 042
  24. INFLECTRA [Suspect]
     Active Substance: INFLIXIMAB-DYYB
     Indication: Colitis ulcerative
     Dosage: 5 MG/KG, 0, 2, 6 THEN EVERY 8 WEEKS
     Route: 042
     Dates: start: 20220127
  25. INFLECTRA [Suspect]
     Active Substance: INFLIXIMAB-DYYB
     Dosage: 5 MG/KG, 0, 2, 6 THEN EVERY 8 WEEKS
     Route: 042
     Dates: start: 20220309
  26. INFLECTRA [Suspect]
     Active Substance: INFLIXIMAB-DYYB
     Dosage: 5 MG/KG, 0, 2, 6 THEN EVERY 8 WEEKS
     Route: 042
     Dates: start: 20220504
  27. INFLECTRA [Suspect]
     Active Substance: INFLIXIMAB-DYYB
     Dosage: 5 MG/KG, 0, 2, 6 THEN EVERY 8 WEEKS
     Route: 042
     Dates: start: 20220706
  28. INFLECTRA [Suspect]
     Active Substance: INFLIXIMAB-DYYB
     Dosage: 5 MG/KG, 0, 2, 6 THEN EVERY 8 WEEKS
     Route: 042
     Dates: start: 20220830
  29. INFLECTRA [Suspect]
     Active Substance: INFLIXIMAB-DYYB
     Dosage: 5 MG/KG, 0, 2, 6 THEN EVERY 8 WEEKS
     Route: 042
     Dates: start: 20221026
  30. INFLECTRA [Suspect]
     Active Substance: INFLIXIMAB-DYYB
     Dosage: 5 MG/KG, 0, 2, 6 THEN EVERY 8 WEEKS
     Route: 042
     Dates: start: 20221221
  31. INFLECTRA [Suspect]
     Active Substance: INFLIXIMAB-DYYB
     Dosage: 5MG/KG, EVERY 8 WEEKS
     Route: 042
     Dates: start: 20230215, end: 20230215
  32. INFLECTRA [Suspect]
     Active Substance: INFLIXIMAB-DYYB
     Dosage: 10MG/KG (420 MG), EVERY 8 WEEKS
     Route: 042
     Dates: start: 20230413
  33. INFLECTRA [Suspect]
     Active Substance: INFLIXIMAB-DYYB
     Dosage: 10 MG/KG, EVERY 8 WEEKS
     Route: 042
     Dates: start: 20230607
  34. INFLECTRA [Suspect]
     Active Substance: INFLIXIMAB-DYYB
     Dosage: 430 MG, AFTER 7 WEEKS AND 6 DAYS (SUPPOSED TO RECEIVE EVERY 8 WEEKS)
     Route: 042
     Dates: start: 20230801
  35. INFLECTRA [Suspect]
     Active Substance: INFLIXIMAB-DYYB
     Dosage: 430 MG, AFTER 7 WEEKS AND 6 DAYS (SUPPOSED TO RECEIVE EVERY 8 WEEKS)
     Route: 042
     Dates: start: 20230801
  36. INFLECTRA [Suspect]
     Active Substance: INFLIXIMAB-DYYB
     Dosage: 10 MG/KG (420 MG), EVERY 8 WEEKS
     Route: 042
     Dates: start: 20230927
  37. INFLECTRA [Suspect]
     Active Substance: INFLIXIMAB-DYYB
     Dosage: 450 MG, EVERY 8 WEEKS
     Route: 042
     Dates: start: 20231122
  38. INFLECTRA [Suspect]
     Active Substance: INFLIXIMAB-DYYB
     Dosage: 10 MG/KG (460 MG), AFTER 7 WEEKS AND 6 DAYS (PRESCRIBED EVERY 8 WEEKS)
     Route: 042
     Dates: start: 20240116
  39. INFLECTRA [Suspect]
     Active Substance: INFLIXIMAB-DYYB
     Dosage: 10 MG/KG (460 MG), AFTER 7 WEEKS AND 6 DAYS (PRESCRIBED EVERY 8 WEEKS)
     Route: 042
     Dates: start: 20240312
  40. INFLECTRA [Suspect]
     Active Substance: INFLIXIMAB-DYYB
     Dosage: 10 MG/KG (460MG), EVERY 8 WEEKS
     Route: 042
     Dates: start: 20240507
  41. INFLECTRA [Suspect]
     Active Substance: INFLIXIMAB-DYYB
     Dosage: 10 MG/KG (460MG), EVERY 8 WEEKS
     Route: 042
     Dates: start: 20240702
  42. INFLECTRA [Suspect]
     Active Substance: INFLIXIMAB-DYYB
     Dosage: 10 MG/KG (460MG), EVERY 8 WEEKS
     Route: 042
     Dates: start: 20240827
  43. INFLECTRA [Suspect]
     Active Substance: INFLIXIMAB-DYYB
     Dosage: 10 MG/KG (460MG), EVERY 8 WEEKS
     Route: 042
     Dates: start: 20241023
  44. INFLECTRA [Suspect]
     Active Substance: INFLIXIMAB-DYYB
     Dosage: 460 MG, 8 WEEKS
     Route: 042
     Dates: start: 20241218
  45. INFLECTRA [Suspect]
     Active Substance: INFLIXIMAB-DYYB
     Dosage: 480 MG,AFTER 8 WEEKS(10MG/KG, EVERY 8 WEEK)
     Route: 042
     Dates: start: 20250212
  46. INFLECTRA [Suspect]
     Active Substance: INFLIXIMAB-DYYB
     Dosage: 450 MG, AFTER 9 WEEKS (10MG/KG, EVERY 8 WEEK)
     Route: 042
     Dates: start: 20250416
  47. INFLECTRA [Suspect]
     Active Substance: INFLIXIMAB-DYYB
     Dosage: 450 MG, AFTER 7 WEEKS AND 6 DAYS (10 MG/KG, EVERY 8 WEEKS)
     Route: 042
     Dates: start: 20250610
  48. INFLECTRA [Suspect]
     Active Substance: INFLIXIMAB-DYYB
     Dosage: 430 MG, 8 WEEKS  (10 MG/KG, EVERY 8 WEEKS)
     Dates: start: 20250806
  49. CLONAZEPAM [Concomitant]
     Active Substance: CLONAZEPAM
     Dosage: UNK
  50. QUETIAPINE [Concomitant]
     Active Substance: QUETIAPINE
     Dosage: UNK

REACTIONS (34)
  - Hallucination [Not Recovered/Not Resolved]
  - Tremor [Not Recovered/Not Resolved]
  - Condition aggravated [Not Recovered/Not Resolved]
  - Drug abuse [Not Recovered/Not Resolved]
  - Alcohol use [Not Recovered/Not Resolved]
  - Labour stimulation [Not Recovered/Not Resolved]
  - Drug level decreased [Not Recovered/Not Resolved]
  - Weight decreased [Not Recovered/Not Resolved]
  - Eating disorder [Not Recovered/Not Resolved]
  - Condition aggravated [Not Recovered/Not Resolved]
  - Nasal congestion [Not Recovered/Not Resolved]
  - Haemorrhoids [Not Recovered/Not Resolved]
  - Uterine contractions abnormal [Not Recovered/Not Resolved]
  - Faeces soft [Not Recovered/Not Resolved]
  - Muscle spasms [Not Recovered/Not Resolved]
  - Vomiting [Not Recovered/Not Resolved]
  - Haematochezia [Not Recovered/Not Resolved]
  - Pneumonia [Not Recovered/Not Resolved]
  - Clostridium difficile infection [Not Recovered/Not Resolved]
  - Bacterial sepsis [Not Recovered/Not Resolved]
  - Bronchitis [Not Recovered/Not Resolved]
  - Abdominal pain [Not Recovered/Not Resolved]
  - Sinusitis [Not Recovered/Not Resolved]
  - Urinary tract infection [Not Recovered/Not Resolved]
  - Vaginal infection [Not Recovered/Not Resolved]
  - Gastroenteritis [Not Recovered/Not Resolved]
  - Headache [Not Recovered/Not Resolved]
  - Nasopharyngitis [Not Recovered/Not Resolved]
  - Constipation [Not Recovered/Not Resolved]
  - Nausea [Not Recovered/Not Resolved]
  - COVID-19 [Not Recovered/Not Resolved]
  - Maternal exposure during pregnancy [Not Recovered/Not Resolved]
  - Overdose [Unknown]
  - Intentional product use issue [Unknown]

NARRATIVE: CASE EVENT DATE: 20220101
